FAERS Safety Report 5051435-8 (Version None)
Quarter: 2006Q3

REPORT INFORMATION
  Report Type: 
  Country: None (occurrence: None)
  Receive Date: 20060710
  Receipt Date: 20060622
  Transmission Date: 20061208
  Serious: Yes (Disabling)
  Sender: FDA-Public Use
  Company Number: 35693

PATIENT

DRUGS (1)
  1. BSS PLUS [Suspect]
     Indication: SURGERY
     Dates: start: 20060614, end: 20060614

REACTIONS (5)
  - CORNEAL OEDEMA [None]
  - ENDOPHTHALMITIS [None]
  - POST PROCEDURAL COMPLICATION [None]
  - PUPIL FIXED [None]
  - WRONG TECHNIQUE IN DRUG USAGE PROCESS [None]
